FAERS Safety Report 8806084 (Version 1)
Quarter: 2012Q4

REPORT INFORMATION
  Report Type: 
  Country: US (occurrence: US)
  Receive Date: 20120925
  Receipt Date: 20120925
  Transmission Date: 20130627
  Serious: Yes (Congenital Anomaly)
  Sender: FDA-Public Use
  Company Number: US-009507513-1209USA008727

PATIENT
  Age: 1 Day
  Sex: Male

DRUGS (3)
  1. SINGULAIR [Suspect]
     Indication: NASAL POLYPS
     Dosage: 10 mg, qd
     Route: 064
     Dates: start: 2010
  2. NASONEX [Suspect]
     Dosage: UNK
     Route: 064
  3. PULMICORT [Concomitant]

REACTIONS (4)
  - Fallot^s tetralogy [Unknown]
  - Cleft palate [Unknown]
  - Penile curvature [Unknown]
  - Foetal exposure during pregnancy [Unknown]
